FAERS Safety Report 8910981 (Version 1)
Quarter: 2012Q4

REPORT INFORMATION
  Report Type: Report from Study
  Country: US (occurrence: US)
  Receive Date: 20121116
  Receipt Date: 20121116
  Transmission Date: 20130627
  Serious: Yes (Other)
  Sender: FDA-Public Use
  Company Number: US-PURDUE-USA-2012-0095697

PATIENT
  Age: 69 Year
  Sex: Female
  Weight: 57.6 kg

DRUGS (17)
  1. OXYCODONE HYDROCHLORIDE (SIMILAR TO NDA 22-272) [Suspect]
     Indication: PRODUCT USED FOR UNKNOWN INDICATION
  2. REMICADE [Suspect]
     Indication: PSORIATIC ARTHROPATHY
     Dosage: UNK
     Route: 042
     Dates: start: 2010
  3. REMICADE [Suspect]
     Indication: RHEUMATOID ARTHRITIS
  4. REMICADE [Suspect]
     Indication: PSORIATIC ARTHROPATHY
  5. CYMBALTA [Suspect]
     Indication: PRODUCT USED FOR UNKNOWN INDICATION
  6. HYDROCODONE [Suspect]
     Indication: PRODUCT USED FOR UNKNOWN INDICATION
  7. LYRICA [Suspect]
     Indication: PRODUCT USED FOR UNKNOWN INDICATION
  8. JANUMET [Concomitant]
     Indication: DIABETES MELLITUS
     Dosage: 1000 mg, daily
     Route: 048
  9. VITAMIN B12                        /00056201/ [Concomitant]
     Indication: VITAMIN B12 DEFICIENCY
     Dosage: 1 UNK, monthly
     Route: 030
  10. LISINOPRIL [Concomitant]
     Indication: HYPERTENSION
     Dosage: 40 mg, daily
     Route: 048
  11. PAXIL [Concomitant]
     Indication: RELAXATION THERAPY
     Dosage: 10 mg, daily
     Route: 048
  12. CRESTOR [Concomitant]
     Indication: BLOOD CHOLESTEROL
     Dosage: 10 mg, daily
     Route: 048
  13. METHOTREXATE [Concomitant]
     Indication: ARTHRITIS
     Dosage: 2.5 mg, 3/week
     Route: 049
  14. NIACIN [Concomitant]
     Indication: PRODUCT USED FOR UNKNOWN INDICATION
     Dosage: 500 mg, daily
     Route: 048
  15. FISH OIL [Concomitant]
     Indication: PRODUCT USED FOR UNKNOWN INDICATION
     Dosage: 1000 mg, bid
     Route: 048
  16. FOLIC ACID [Concomitant]
     Indication: PRODUCT USED FOR UNKNOWN INDICATION
     Dosage: UNK
  17. PRILOSEC                           /00661201/ [Concomitant]
     Indication: DYSPEPSIA
     Dosage: 40 mg, daily
     Route: 048

REACTIONS (6)
  - Rheumatoid arthritis [Not Recovered/Not Resolved]
  - Joint dislocation [Not Recovered/Not Resolved]
  - Migraine [Unknown]
  - Fall [Recovered/Resolved]
  - Malaise [Recovered/Resolved]
  - Headache [Unknown]
